FAERS Safety Report 8884698 (Version 2)
Quarter: 2013Q1

REPORT INFORMATION
  Report Type: Spontaneous
  Country: US (occurrence: US)
  Receive Date: 20121102
  Receipt Date: 20130103
  Transmission Date: 20140127
  Serious: Yes (Other)
  Sender: FDA-Public Use
  Company Number: US-NOVOPROD-363171

PATIENT
  Age: 76 Year
  Sex: Female
  Weight: 82.09 kg

DRUGS (3)
  1. LEVEMIR FLEXPEN [Suspect]
     Indication: TYPE 2 DIABETES MELLITUS
     Dosage: 50 UNITS AT NIGHT
     Route: 058
     Dates: start: 2009, end: 20121010
  2. NOVOLOG FLEXPEN [Suspect]
     Indication: TYPE 2 DIABETES MELLITUS
     Dosage: 15 UNITS THREE TIMES A DAY
     Route: 058
     Dates: start: 2009, end: 20121010
  3. NITROGLYCERINE [Concomitant]
     Indication: ANGINA PECTORIS
     Dosage: UNK, PRN
     Route: 060

REACTIONS (2)
  - Umbilical hernia [Recovered/Resolved]
  - Injection site atrophy [Not Recovered/Not Resolved]
